FAERS Safety Report 23774879 (Version 3)
Quarter: 2025Q3

REPORT INFORMATION
  Report Type: Spontaneous
  Country: CA (occurrence: CA)
  Receive Date: 20240423
  Receipt Date: 20250809
  Transmission Date: 20251021
  Serious: Yes (Other)
  Sender: ALEXION PHARMACEUTICALS
  Company Number: 2020SF37210

PATIENT
  Age: 64 Year
  Sex: Male

DRUGS (19)
  1. BUDESONIDE\FORMOTEROL [Suspect]
     Active Substance: BUDESONIDE\FORMOTEROL
     Indication: Product used for unknown indication
  2. BREO ELLIPTA [Suspect]
     Active Substance: FLUTICASONE FUROATE\VILANTEROL TRIFENATATE
     Indication: Product used for unknown indication
  3. FLOVENT [Suspect]
     Active Substance: FLUTICASONE PROPIONATE
     Indication: Asthma
     Route: 065
  4. NUCALA [Suspect]
     Active Substance: MEPOLIZUMAB
     Indication: Product used for unknown indication
  5. NUCALA [Suspect]
     Active Substance: MEPOLIZUMAB
     Indication: Product used for unknown indication
  6. NUCALA [Suspect]
     Active Substance: MEPOLIZUMAB
  7. NUCALA [Suspect]
     Active Substance: MEPOLIZUMAB
  8. NUCALA [Suspect]
     Active Substance: MEPOLIZUMAB
     Indication: Product used for unknown indication
  9. ALBUTEROL SULFATE [Suspect]
     Active Substance: ALBUTEROL SULFATE
     Indication: Asthma
     Route: 065
  10. SINGULAIR [Suspect]
     Active Substance: MONTELUKAST SODIUM
     Indication: Product used for unknown indication
     Route: 065
  11. SPIRIVA [Suspect]
     Active Substance: TIOTROPIUM BROMIDE MONOHYDRATE
     Indication: Product used for unknown indication
     Route: 065
  12. AZITHROMYCIN [Concomitant]
     Active Substance: AZITHROMYCIN
     Indication: Product used for unknown indication
     Route: 065
  13. CETIRIZINE HYDROCHLORIDE [Concomitant]
     Active Substance: CETIRIZINE HYDROCHLORIDE
     Indication: Product used for unknown indication
     Route: 065
  14. PREDNISONE [Concomitant]
     Active Substance: PREDNISONE
     Indication: Product used for unknown indication
     Route: 065
  15. RUPATADINE FUMARATE [Concomitant]
     Active Substance: RUPATADINE FUMARATE
     Route: 065
  16. VIAGRA [Concomitant]
     Active Substance: SILDENAFIL CITRATE
     Indication: Hypertension
     Route: 065
  17. VIAGRA [Concomitant]
     Active Substance: SILDENAFIL CITRATE
     Indication: Erectile dysfunction
  18. VIAGRA [Concomitant]
     Active Substance: SILDENAFIL CITRATE
     Indication: Hypertension
     Route: 065
  19. VIAGRA [Concomitant]
     Active Substance: SILDENAFIL CITRATE
     Indication: Erectile dysfunction

REACTIONS (12)
  - Anti-neutrophil cytoplasmic antibody positive vasculitis [Recovering/Resolving]
  - Antineutrophil cytoplasmic antibody [Recovering/Resolving]
  - Asthma [Recovering/Resolving]
  - Cough [Recovering/Resolving]
  - Erectile dysfunction [Recovering/Resolving]
  - FEV1/FVC ratio decreased [Recovering/Resolving]
  - Forced expiratory volume decreased [Recovering/Resolving]
  - Full blood count abnormal [Recovering/Resolving]
  - Hypersensitivity [Recovering/Resolving]
  - Obstructive airways disorder [Recovering/Resolving]
  - Respiratory symptom [Recovering/Resolving]
  - Vital capacity decreased [Recovering/Resolving]
